FAERS Safety Report 10023569 (Version 1)
Quarter: 2014Q1

REPORT INFORMATION
  Report Type: Spontaneous
  Country: US (occurrence: None)
  Receive Date: 20140319
  Receipt Date: 20140319
  Transmission Date: 20141002
  Serious: Yes (Other)
  Sender: FDA-Public Use
  Company Number: None

PATIENT
  Age: 51 Year
  Sex: Female

DRUGS (1)
  1. CELEXA [Suspect]
     Indication: ANXIETY
     Dosage: 1 ONCE DAILY TAKEN BY MOUTH
     Route: 048
     Dates: start: 20140117, end: 20140223

REACTIONS (7)
  - Arthralgia [None]
  - Rash maculo-papular [None]
  - Joint swelling [None]
  - Abasia [None]
  - Joint swelling [None]
  - Blister [None]
  - Back pain [None]
